FAERS Safety Report 7455913-3 (Version None)
Quarter: 2011Q2

REPORT INFORMATION
  Report Type: 
  Country: None (occurrence: None)
  Receive Date: 20110503
  Receipt Date: 20110418
  Transmission Date: 20111010
  Serious: Yes (Hospitalization)
  Sender: FDA-Public Use
  Company Number: JP-JNJFOC-20110404426

PATIENT
  Sex: Male

DRUGS (11)
  1. VOLTAREN [Suspect]
     Indication: PAIN
     Route: 048
  2. FAMOTIDINE [Suspect]
     Indication: PROPHYLAXIS AGAINST GASTROINTESTINAL ULCER
     Route: 048
  3. TRAMADOL HCL [Suspect]
     Indication: PAIN
     Route: 048
     Dates: start: 20110307, end: 20110405
  4. TRAMADOL HCL [Suspect]
     Dosage: 200MG/DAY
     Route: 048
     Dates: start: 20110307, end: 20110405
  5. PROCHLORPERAZINE [Suspect]
     Indication: NAUSEA
     Route: 048
  6. MAGMITT [Suspect]
     Indication: CONSTIPATION
     Route: 048
  7. FOLIC ACID [Suspect]
     Indication: ANKYLOSING SPONDYLITIS
     Route: 048
  8. METHOTREXATE [Suspect]
     Indication: ANKYLOSING SPONDYLITIS
     Route: 048
  9. TRAMADOL HCL [Suspect]
     Dosage: 300MG/DAY
     Route: 048
     Dates: start: 20110307, end: 20110405
  10. TRAMADOL HCL [Suspect]
     Dosage: 100MG/DAY
     Route: 048
     Dates: start: 20110307, end: 20110405
  11. PREDNISOLONE [Suspect]
     Indication: ANKYLOSING SPONDYLITIS
     Route: 048

REACTIONS (9)
  - CONVULSION [None]
  - NAUSEA [None]
  - CONTUSION [None]
  - FALL [None]
  - DIZZINESS [None]
  - DECREASED APPETITE [None]
  - FATIGUE [None]
  - VOMITING [None]
  - DYSPHORIA [None]
